FAERS Safety Report 7028390-4 (Version None)
Quarter: 2010Q4

REPORT INFORMATION
  Report Type: 
  Country: None (occurrence: None)
  Receive Date: 20101005
  Receipt Date: 20100925
  Transmission Date: 20110411
  Serious: Yes (Other)
  Sender: FDA-Public Use
  Company Number: IL-PFIZER INC-2010124098

PATIENT
  Age: 15 Year
  Sex: Male

DRUGS (1)
  1. AZITHROMYCIN [Suspect]

REACTIONS (9)
  - COMPLEX PARTIAL SEIZURES [None]
  - EXTENSOR PLANTAR RESPONSE [None]
  - HALLUCINATION [None]
  - HEADACHE [None]
  - HEMIANOPIA [None]
  - HEMIPARESIS [None]
  - HYPERREFLEXIA [None]
  - HYPOAESTHESIA [None]
  - VISUAL IMPAIRMENT [None]
